FAERS Safety Report 10451605 (Version 1)
Quarter: 2014Q3

REPORT INFORMATION
  Report Type: Other
  Country: FR (occurrence: FR)
  Receive Date: 20140914
  Receipt Date: 20140914
  Transmission Date: 20150326
  Serious: Yes (Hospitalization)
  Sender: FDA-Public Use
  Company Number: FR-MYLAN-2014M1003890

PATIENT

DRUGS (8)
  1. MOLSIDOMINE [Suspect]
     Active Substance: MOLSIDOMINE
     Indication: ANGINA PECTORIS
     Dosage: 4 MG, QD
     Route: 048
     Dates: start: 200103, end: 20080422
  2. FUROS?MIDE 40 MG [Suspect]
     Active Substance: FUROSEMIDE
     Indication: HYPERTENSION
     Dosage: 40 MG, QD
     Route: 048
  3. DOMPERIDONE [Concomitant]
     Active Substance: DOMPERIDONE
  4. PRAVASTATIN [Concomitant]
     Active Substance: PRAVASTATIN\PRAVASTATIN SODIUM
  5. RAMIPRIL 2,5 MG [Suspect]
     Active Substance: RAMIPRIL
     Indication: MYOCARDIAL INFARCTION
     Dosage: 2.5 MG, QD
     Route: 048
  6. PREVISCAN                          /00261401/ [Concomitant]
     Active Substance: PENTOXIFYLLINE
  7. INIPOMP [Concomitant]
     Active Substance: PANTOPRAZOLE SODIUM
  8. AT?NOLOL 50MG [Suspect]
     Active Substance: ATENOLOL
     Indication: HYPERTENSION
     Dosage: 75 MG, QD
     Route: 048
     Dates: end: 20080421

REACTIONS (21)
  - Blood alkaline phosphatase increased [None]
  - Ischaemic cardiomyopathy [None]
  - Tricuspid valve incompetence [None]
  - Orthostatic hypotension [Recovered/Resolved]
  - Atrial fibrillation [None]
  - Ejection fraction decreased [None]
  - Aortic stenosis [None]
  - Contusion [None]
  - Mitral valve incompetence [None]
  - Loss of consciousness [Recovered/Resolved]
  - Aspartate aminotransferase increased [None]
  - Pleural effusion [None]
  - Aortic calcification [None]
  - Ventricular tachycardia [None]
  - Malaise [Recovered/Resolved]
  - Fall [None]
  - Bundle branch block bilateral [None]
  - Gamma-glutamyltransferase increased [None]
  - Musculoskeletal chest pain [None]
  - Blood bilirubin increased [None]
  - Cardiac output decreased [None]

NARRATIVE: CASE EVENT DATE: 20080419
